FAERS Safety Report 5483117-2 (Version None)
Quarter: 2007Q4

REPORT INFORMATION
  Report Type: 
  Country: None (occurrence: None)
  Receive Date: 20071005
  Receipt Date: 20070921
  Transmission Date: 20080405
  Serious: Yes (Death)
  Sender: FDA-Public Use
  Company Number: A-CH2007-17814

PATIENT
  Age: 68 Year
  Sex: Male

DRUGS (2)
  1. TRACLEER [Suspect]
     Indication: PULMONARY HYPERTENSION
     Dosage: 125  MG, BID, ORAL, 62.5 MG, BID, ORAL
     Route: 048
     Dates: start: 20060101, end: 20060201
  2. TRACLEER [Suspect]
     Indication: PULMONARY HYPERTENSION
     Dosage: 125  MG, BID, ORAL, 62.5 MG, BID, ORAL
     Route: 048
     Dates: start: 20060201, end: 20070201

REACTIONS (1)
  - PNEUMONIA [None]
